FAERS Safety Report 7564677-4 (Version None)
Quarter: 2011Q2

REPORT INFORMATION
  Report Type: 
  Country: None (occurrence: None)
  Receive Date: 20110622
  Receipt Date: 20101112
  Transmission Date: 20111010
  Serious: Yes (Other)
  Sender: FDA-Public Use
  Company Number: US-MYLANLABS-2010S1015305

PATIENT
  Age: 61 Year
  Sex: Female

DRUGS (4)
  1. DEPAKOTE [Concomitant]
  2. CLOZAPINE [Suspect]
     Indication: SCHIZOPHRENIA
  3. CLOZAPINE [Suspect]
  4. TEMAZEPAM [Concomitant]

REACTIONS (1)
  - GRANULOCYTOPENIA [None]
